FAERS Safety Report 19502017 (Version 1)
Quarter: 2021Q3

REPORT INFORMATION
  Report Type: Spontaneous
  Country: US (occurrence: US)
  Receive Date: 20210707
  Receipt Date: 20210707
  Transmission Date: 20211014
  Serious: No
  Sender: FDA-Public Use
  Company Number: US-JUBILANT CADISTA PHARMACEUTICALS-2021JUB00119

PATIENT
  Sex: Male
  Weight: 70.3 kg

DRUGS (2)
  1. MECLIZINE HYDROCHLORIDE. [Suspect]
     Active Substance: MECLIZINE HYDROCHLORIDE
     Route: 048
  2. LISINOPRIL. [Concomitant]
     Active Substance: LISINOPRIL

REACTIONS (2)
  - Speech disorder [Recovered/Resolved]
  - Gait disturbance [Recovered/Resolved]
